FAERS Safety Report 5767523-4 (Version None)
Quarter: 2008Q2

REPORT INFORMATION
  Report Type: 
  Country: None (occurrence: None)
  Receive Date: 20080612
  Receipt Date: 20080529
  Transmission Date: 20081010
  Serious: Yes (Other)
  Sender: FDA-Public Use
  Company Number: ES-JNJFOC-20080505779

PATIENT
  Age: 35 Year
  Sex: Male

DRUGS (1)
  1. TAVANIC [Suspect]
     Indication: URINARY TRACT INFECTION
     Route: 048

REACTIONS (3)
  - DELIRIUM [None]
  - INSOMNIA [None]
  - PARASOMNIA [None]
